FAERS Safety Report 8956148 (Version 2)
Quarter: 2013Q1

REPORT INFORMATION
  Report Type: Spontaneous
  Country: US (occurrence: US)
  Receive Date: 20121210
  Receipt Date: 20130116
  Transmission Date: 20140127
  Serious: No
  Sender: FDA-Public Use
  Company Number: US-B.I. PHARMACEUTICALS,INC./RIDGEFIELD-2012-BI-02119BP

PATIENT
  Age: 84 Year
  Sex: Female
  Weight: 74 kg

DRUGS (10)
  1. PRADAXA [Suspect]
     Indication: ATRIAL FIBRILLATION
     Dosage: 150 MG
     Route: 048
     Dates: start: 201103
  2. ASPIRIN [Concomitant]
     Dosage: 81 MG
     Route: 048
  3. IMDUR [Concomitant]
     Indication: PAIN
     Dosage: 30 MG
     Route: 048
  4. TOPROL [Concomitant]
     Indication: HYPERTENSION
     Dosage: 75 MG
     Route: 048
  5. CALCIUM WITH VITAMIN D [Concomitant]
     Dosage: 600 MG
     Route: 048
  6. DYAZIDE [Concomitant]
     Indication: HYPERTENSION
     Route: 048
  7. SIMVASTATIN [Concomitant]
     Indication: BLOOD CHOLESTEROL INCREASED
     Dosage: 10 MG
     Route: 048
  8. SYNTHROID [Concomitant]
     Indication: HYPOTHYROIDISM
     Dosage: 0.075 MG
     Route: 048
  9. PEPCID [Concomitant]
     Indication: GASTROOESOPHAGEAL REFLUX DISEASE
     Dosage: 20 MG
     Route: 048
  10. COQ10 [Concomitant]
     Dosage: 300 MG
     Route: 048

REACTIONS (2)
  - Paraesthesia [Not Recovered/Not Resolved]
  - Pain [Recovered/Resolved]
